FAERS Safety Report 16996872 (Version 6)
Quarter: 2020Q1

REPORT INFORMATION
  Report Type: Spontaneous
  Country: US (occurrence: US)
  Receive Date: 20191105
  Receipt Date: 20200330
  Transmission Date: 20200409
  Serious: No
  Sender: FDA-Public Use
  Company Number: US-DSJP-DSU-2019-141194

PATIENT

DRUGS (1)
  1. TURALIO [Suspect]
     Active Substance: PEXIDARTINIB HYDROCHLORIDE
     Indication: SYNOVITIS
     Dosage: 400 MG, BID
     Route: 048
     Dates: start: 20191017

REACTIONS (10)
  - Arthralgia [Recovered/Resolved]
  - Pain in extremity [Unknown]
  - Diarrhoea [Recovering/Resolving]
  - Pruritus [Recovered/Resolved]
  - Headache [Recovering/Resolving]
  - Hair colour changes [Unknown]
  - Product dose omission [Unknown]
  - Abdominal pain upper [Recovering/Resolving]
  - Fatigue [Unknown]
  - Cough [Recovering/Resolving]

NARRATIVE: CASE EVENT DATE: 2019
